FAERS Safety Report 24623768 (Version 3)
Quarter: 2025Q4

REPORT INFORMATION
  Report Type: Spontaneous
  Country: EU (occurrence: EU)
  Receive Date: 20241115
  Receipt Date: 20251007
  Transmission Date: 20260118
  Serious: Yes (Hospitalization)
  Sender: AUROBINDO
  Company Number: EU-Eisai-EC-2024-177659

PATIENT
  Age: 49 Year
  Sex: Female

DRUGS (8)
  1. LEVETIRACETAM [Suspect]
     Active Substance: LEVETIRACETAM
     Indication: Status epilepticus
     Dosage: 2000 MILLIGRAM, ONCE A DAY
     Route: 065
  2. LEVETIRACETAM [Suspect]
     Active Substance: LEVETIRACETAM
     Dosage: 40 MILLIGRAM/KILOGRAM
     Route: 065
  3. LEVETIRACETAM [Suspect]
     Active Substance: LEVETIRACETAM
     Dosage: 12 MG (24 ML OF ORAL SOLUTION)
     Route: 048
  4. DIAZEPAM [Suspect]
     Active Substance: DIAZEPAM
     Indication: Status epilepticus
     Dosage: 10 MILLIGRAM, ONCE A DAY
     Route: 042
  5. DEXAMETHASONE [Suspect]
     Active Substance: DEXAMETHASONE
     Indication: Product used for unknown indication
     Dosage: 4 MILLIGRAM, ONCE A DAY
     Route: 065
  6. PERAMPANEL [Suspect]
     Active Substance: PERAMPANEL
     Indication: Status epilepticus
     Dosage: 12 MILLIGRAM, ONCE A DAY
     Route: 048
  7. PERAMPANEL [Suspect]
     Active Substance: PERAMPANEL
     Dosage: 8 MILLIGRAM, ONCE A DAY
     Route: 048
  8. BRIVARACETAM [Concomitant]
     Active Substance: BRIVARACETAM
     Indication: Product used for unknown indication
     Dosage: 200 MILLIGRAM, DAILY
     Route: 065

REACTIONS (4)
  - Psychomotor hyperactivity [Recovered/Resolved]
  - Suicidal ideation [Recovered/Resolved]
  - Drug ineffective [Unknown]
  - Off label use [Unknown]
